FAERS Safety Report 13350995 (Version 4)
Quarter: 2018Q3

REPORT INFORMATION
  Report Type: Spontaneous
  Country: US (occurrence: US)
  Receive Date: 20170320
  Receipt Date: 20180823
  Transmission Date: 20181010
  Serious: No
  Sender: FDA-Public Use
  Company Number: US-PFIZER INC-2017113551

PATIENT
  Age: 55 Year
  Sex: Female
  Weight: 78.5 kg

DRUGS (2)
  1. NEURONTIN [Suspect]
     Active Substance: GABAPENTIN
     Indication: FIBROMYALGIA
     Dosage: 800 MG, DAILY (200 MG IN THE MORNING, 200 MG AT LUNCH AND 400 MG AT BEDTIME)
  2. NEURONTIN [Suspect]
     Active Substance: GABAPENTIN
     Indication: POLYARTHRITIS

REACTIONS (1)
  - Drug ineffective for unapproved indication [Unknown]
